FAERS Safety Report 7061117-9 (Version None)
Quarter: 2010Q4

REPORT INFORMATION
  Report Type: 
  Country: None (occurrence: None)
  Receive Date: 20101026
  Receipt Date: 20101014
  Transmission Date: 20110411
  Serious: Yes (Hospitalization)
  Sender: FDA-Public Use
  Company Number: US-BAYER-201029506NA

PATIENT
  Age: 21 Year
  Sex: Female
  Weight: 110 kg

DRUGS (10)
  1. DROSPIRENONE AND ETHINYL ESTRADIOL [Suspect]
     Indication: ORAL CONTRACEPTION
     Route: 048
     Dates: start: 20091001, end: 20100110
  2. YAZ [Suspect]
     Indication: ORAL CONTRACEPTION
     Route: 048
  3. WARFARIN SODIUM [Concomitant]
     Route: 048
  4. SUMATRIPTAN SUCCINATE [Concomitant]
  5. TRAMADOL HYDROCHLORIDE [Concomitant]
  6. AMOXICILLIN [Concomitant]
  7. ZITHROMAX [Concomitant]
  8. CEPHALEXIN [Concomitant]
  9. ASCORBIC ACID [Concomitant]
  10. ASCORBIC ACID [Concomitant]

REACTIONS (2)
  - DEEP VEIN THROMBOSIS [None]
  - PULMONARY EMBOLISM [None]
